FAERS Safety Report 10229403 (Version 3)
Quarter: 2014Q3

REPORT INFORMATION
  Report Type: Spontaneous
  Country: US (occurrence: None)
  Receive Date: 20140609
  Receipt Date: 20140702
  Transmission Date: 20150326
  Serious: Yes (Hospitalization)
  Sender: FDA-Public Use
  Company Number: US-001042

PATIENT
  Age: 57 Year
  Sex: Female
  Weight: 71.67 kg

DRUGS (3)
  1. SOLUTIONS FOR PARENTERAL NUTRITION [Concomitant]
     Active Substance: AMINO ACIDS\DEXTROSE\ELECTROLYTES NOS
  2. GATTEX [Suspect]
     Active Substance: TEDUGLUTIDE\WATER
     Indication: SHORT-BOWEL SYNDROME
     Dosage: 0.3 ML/FREQU:  DAILY SUBCUTANEOUS
     Route: 058
     Dates: start: 20140524, end: 2014
  3. COUMADIN [Concomitant]
     Active Substance: WARFARIN SODIUM

REACTIONS (9)
  - Abdominal distension [None]
  - Muscle spasms [None]
  - Weight increased [None]
  - Nausea [None]
  - Heart rate irregular [None]
  - Flatulence [None]
  - Hypotension [None]
  - Haematoma [None]
  - Contusion [None]

NARRATIVE: CASE EVENT DATE: 20140525
